FAERS Safety Report 4552490-1 (Version None)
Quarter: 2005Q1

REPORT INFORMATION
  Report Type: 
  Country: None (occurrence: None)
  Receive Date: 20050112
  Receipt Date: 20041229
  Transmission Date: 20050727
  Serious: Yes (Hospitalization)
  Sender: FDA-Public Use
  Company Number: CEL-2004-02231-ROC

PATIENT
  Age: 19 Year
  Sex: Male

DRUGS (1)
  1. DELSYM [Suspect]
     Dosage: 2 BOTTLES,
     Dates: start: 20041201, end: 20041201

REACTIONS (5)
  - DRUG TOXICITY [None]
  - FEELING ABNORMAL [None]
  - LETHARGY [None]
  - NERVOUS SYSTEM DISORDER [None]
  - SPEECH DISORDER [None]
